FAERS Safety Report 19570891 (Version 4)
Quarter: 2022Q4

REPORT INFORMATION
  Report Type: Spontaneous
  Country: US (occurrence: US)
  Receive Date: 20210716
  Receipt Date: 20221103
  Transmission Date: 20230113
  Serious: No
  Sender: FDA-Public Use
  Company Number: US-PFIZER INC-2021423132

PATIENT
  Age: 60 Year
  Sex: Female

DRUGS (2)
  1. ARTHROTEC [Suspect]
     Active Substance: DICLOFENAC SODIUM\MISOPROSTOL
     Indication: Arthritis
     Dosage: 1 DF, 2X/DAY
     Route: 048
  2. ARTHROTEC [Suspect]
     Active Substance: DICLOFENAC SODIUM\MISOPROSTOL
     Indication: Osteoarthritis

REACTIONS (1)
  - No adverse event [Unknown]
